FAERS Safety Report 18086811 (Version 1)
Quarter: 2020Q3

REPORT INFORMATION
  Report Type: Spontaneous
  Country: US (occurrence: US)
  Receive Date: 20200728
  Receipt Date: 20200728
  Transmission Date: 20201103
  Serious: Yes (Other)
  Sender: FDA-Public Use
  Company Number: None

PATIENT
  Age: 82 Year
  Sex: Female

DRUGS (2)
  1. BLUMEN CLEAR ADVANCED HAND SANITIZER [Suspect]
     Active Substance: ALCOHOL
     Indication: INFECTION PROPHYLAXIS
     Route: 061
     Dates: start: 20200421, end: 20200727
  2. HIGH BLOOD PRESSURE PILLS [Concomitant]

REACTIONS (5)
  - Sticky skin [None]
  - Balance disorder [None]
  - Vision blurred [None]
  - Eye pruritus [None]
  - Visual impairment [None]

NARRATIVE: CASE EVENT DATE: 20200429
